FAERS Safety Report 8597082-2 (Version None)
Quarter: 2012Q3

REPORT INFORMATION
  Report Type: 
  Country: None (occurrence: None)
  Receive Date: 20120816
  Receipt Date: 20120806
  Transmission Date: 20120928
  Serious: Yes (Hospitalization, Other)
  Sender: FDA-Public Use
  Company Number: US-BIOGENIDEC-2011BI039493

PATIENT
  Age: 66 Year
  Sex: Female

DRUGS (3)
  1. INTERFERON BETA-1A [Suspect]
     Route: 030
     Dates: start: 20030101, end: 20030101
  2. INTERFERON BETA-1A [Suspect]
     Route: 030
     Dates: start: 20030101, end: 20110901
  3. INTERFERON BETA-1A [Suspect]
     Indication: MULTIPLE SCLEROSIS
     Route: 030
     Dates: start: 20000101, end: 20030101

REACTIONS (3)
  - BREAST CANCER FEMALE [None]
  - INFLUENZA LIKE ILLNESS [None]
  - INTRAOCULAR MELANOMA [None]
